FAERS Safety Report 10193551 (Version 1)
Quarter: 2014Q2

REPORT INFORMATION
  Report Type: Spontaneous
  Country: US (occurrence: US)
  Receive Date: 20140524
  Receipt Date: 20140524
  Transmission Date: 20141212
  Serious: No
  Sender: FDA-Public Use
  Company Number: US-SA-2013SA133662

PATIENT
  Age: 63 Year
  Sex: Male
  Weight: 81.64 kg

DRUGS (3)
  1. LANTUS SOLOSTAR [Suspect]
     Indication: TYPE 2 DIABETES MELLITUS
     Dosage: PRODUCT START 3-5 YEARS AGO DOSE:43 UNIT(S)
     Route: 051
     Dates: start: 20101001
  2. LANTUS SOLOSTAR [Suspect]
     Indication: TYPE 2 DIABETES MELLITUS
     Dosage: PRODUCT START 3-5 YEARS AGO DOSE:43 UNIT(S)
     Route: 051
     Dates: start: 20101001
  3. SOLOSTAR [Concomitant]
     Dosage: PRODUCT START 3-5 YEARS AGO

REACTIONS (1)
  - Visual impairment [Unknown]
